FAERS Safety Report 9975108 (Version 1)
Quarter: 2014Q1

REPORT INFORMATION
  Report Type: Report from Study
  Country: US (occurrence: US)
  Receive Date: 20140306
  Receipt Date: 20140306
  Transmission Date: 20141002
  Serious: No
  Sender: FDA-Public Use
  Company Number: US-ABBVIE-13P-163-1160381-00

PATIENT
  Age: 23 Year
  Sex: Male

DRUGS (2)
  1. HUMIRA [Suspect]
     Indication: CROHN^S DISEASE
     Dates: start: 20130925
  2. AZASAN [Concomitant]
     Indication: CROHN^S DISEASE
     Dosage: 1.5 TABLETS DAILY

REACTIONS (2)
  - Drug dose omission [Unknown]
  - Drug dose omission [Unknown]
